FAERS Safety Report 25855842 (Version 1)
Quarter: 2025Q3

REPORT INFORMATION
  Report Type: Spontaneous
  Country: US (occurrence: US)
  Receive Date: 20250928
  Receipt Date: 20250928
  Transmission Date: 20251020
  Serious: No
  Sender: ALEXION PHARMACEUTICALS
  Company Number: US-AstraZeneca-CH-00958038A

PATIENT
  Age: 99 Year
  Sex: Female

DRUGS (2)
  1. FARXIGA [Suspect]
     Active Substance: DAPAGLIFLOZIN PROPANEDIOL
     Route: 065
  2. PYRIDIUM [Concomitant]
     Active Substance: PHENAZOPYRIDINE
     Route: 065

REACTIONS (2)
  - Burning sensation [Unknown]
  - Pruritus [Unknown]
